FAERS Safety Report 8955264 (Version 1)
Quarter: 2012Q4

REPORT INFORMATION
  Report Type: 
  Country: US (occurrence: US)
  Receive Date: 20121210
  Receipt Date: 20121210
  Transmission Date: 20130627
  Serious: No
  Sender: FDA-Public Use
  Company Number: US-PFIZER INC-2012304695

PATIENT
  Age: 49 Year
  Sex: Female

DRUGS (4)
  1. XANAX [Suspect]
     Indication: INSOMNIA
     Dosage: UNK
     Dates: start: 2012
  2. VIIBRYD [Suspect]
     Indication: DEPRESSION
     Dosage: 10 mg, 1x/day
     Route: 048
     Dates: start: 20121030, end: 20121105
  3. VIIBRYD [Suspect]
     Dosage: 20 mg, 1x/day
     Route: 048
     Dates: start: 20121106, end: 20121115
  4. VIIBRYD [Suspect]
     Dosage: 10 mg, 1x/day
     Route: 048
     Dates: start: 20121116

REACTIONS (4)
  - Somnolence [Not Recovered/Not Resolved]
  - Feeling abnormal [Not Recovered/Not Resolved]
  - Vision blurred [Not Recovered/Not Resolved]
  - Off label use [Unknown]
